FAERS Safety Report 9617423 (Version 1)
Quarter: 2013Q4

REPORT INFORMATION
  Report Type: Report from Study
  Country: NZ (occurrence: NZ)
  Receive Date: 20131011
  Receipt Date: 20131011
  Transmission Date: 20140711
  Serious: Yes (Other)
  Sender: FDA-Public Use
  Company Number: PHHY2013NZ114068

PATIENT
  Age: 18 Year
  Sex: 0

DRUGS (2)
  1. CLOZARIL [Suspect]
     Indication: SCHIZOPHRENIA
     Dosage: UNK
  2. CLOZARIL [Suspect]
     Dosage: 150 MG, (50 MG MANE AND 100 MG NOCTE)

REACTIONS (2)
  - Dyspnoea [Unknown]
  - Sinus tachycardia [Unknown]
